FAERS Safety Report 9502174 (Version 4)
Quarter: 2014Q1

REPORT INFORMATION
  Report Type: Spontaneous
  Country: JP (occurrence: JP)
  Receive Date: 20130905
  Receipt Date: 20140221
  Transmission Date: 20141002
  Serious: Yes (Hospitalization)
  Sender: FDA-Public Use
  Company Number: JP-ROCHE-1269299

PATIENT
  Age: 66 Year
  Sex: Female
  Weight: 62 kg

DRUGS (8)
  1. XELODA [Suspect]
     Indication: COLON CANCER
     Dosage: 2 WEEKS ADMINISTRATION FOLLOWED BY 1 WEEK REST
     Route: 048
     Dates: start: 20130722, end: 20130819
  2. ELPLAT [Suspect]
     Indication: COLON CANCER
     Route: 041
     Dates: start: 20130722, end: 20130819
  3. SENNOSIDE [Concomitant]
     Indication: PROPHYLAXIS
     Route: 048
  4. MAGMITT [Concomitant]
     Indication: PROPHYLAXIS
     Route: 048
  5. EXFORGE [Concomitant]
     Indication: HYPERTENSION
     Route: 048
  6. NIKORANMART [Concomitant]
     Indication: PROPHYLAXIS
     Route: 048
  7. CRESTOR [Concomitant]
     Indication: HYPERLIPIDAEMIA
     Route: 048
  8. JANUVIA [Concomitant]
     Indication: DIABETES MELLITUS
     Route: 048

REACTIONS (1)
  - Interstitial lung disease [Recovering/Resolving]
